FAERS Safety Report 7883497-4 (Version None)
Quarter: 2011Q4

REPORT INFORMATION
  Report Type: 
  Country: None (occurrence: None)
  Receive Date: 20111102
  Receipt Date: 20110420
  Transmission Date: 20120403
  Serious: No
  Sender: FDA-Public Use
  Company Number: US-GLAXOSMITHKLINE-A0924829A

PATIENT
  Age: 67 Year
  Sex: Male

DRUGS (5)
  1. ZOCOR [Concomitant]
  2. RHYTHMOL [Suspect]
     Indication: ATRIAL FIBRILLATION
     Dosage: 1TAB THREE TIMES PER DAY
     Route: 048
     Dates: start: 20110329
  3. BLOOD PRESSURE MEDICATION [Suspect]
     Indication: BLOOD PRESSURE
     Route: 048
  4. RYTHMOL SR [Suspect]
     Indication: ATRIAL FIBRILLATION
     Dosage: 225MG THREE TIMES PER DAY
     Route: 048
     Dates: start: 20110315, end: 20110327
  5. COUMADIN [Concomitant]

REACTIONS (12)
  - HEART RATE DECREASED [None]
  - DRUG ADMINISTRATION ERROR [None]
  - OVERDOSE [None]
  - ABASIA [None]
  - CARDIOVERSION [None]
  - HYPERHIDROSIS [None]
  - DRUG INEFFECTIVE [None]
  - DIZZINESS [None]
  - ASTHENIA [None]
  - DYSPNOEA [None]
  - GAIT DISTURBANCE [None]
  - HYPOTENSION [None]
